FAERS Safety Report 9650134 (Version 1)
Quarter: 2013Q4

REPORT INFORMATION
  Report Type: Spontaneous
  Country: US (occurrence: US)
  Receive Date: 20131028
  Receipt Date: 20131028
  Transmission Date: 20140711
  Serious: No
  Sender: FDA-Public Use
  Company Number: US-PURDUE-USA-2013-0097414

PATIENT
  Sex: Male

DRUGS (2)
  1. OXYCONTIN (NDA 22-272) [Suspect]
     Indication: PAIN
     Dosage: UNK
     Route: 048
     Dates: start: 201008
  2. OXYCONTIN (NDA 22-272) [Suspect]
     Dosage: 80 MG, 13 TABLETS PER DAY
     Route: 048

REACTIONS (4)
  - Medication residue present [Unknown]
  - Drug effect decreased [Unknown]
  - Inadequate analgesia [Unknown]
  - Nausea [Unknown]
